FAERS Safety Report 9691572 (Version 2)
Quarter: 2013Q4

REPORT INFORMATION
  Report Type: Report from Study
  Country: JP (occurrence: JP)
  Receive Date: 20131115
  Receipt Date: 20131115
  Transmission Date: 20140711
  Serious: Yes (Other)
  Sender: FDA-Public Use
  Company Number: JP-TAKEDA-TCI2013A04690

PATIENT
  Age: 85 Year
  Sex: Female
  Weight: 50 kg

DRUGS (20)
  1. TAKEPRON OD TABLETS 15 [Suspect]
     Indication: PROPHYLAXIS AGAINST GASTROINTESTINAL ULCER
     Route: 048
     Dates: start: 20111229
  2. TAKEPRON OD TABLETS 15 [Suspect]
     Indication: PROPHYLAXIS AGAINST GASTROINTESTINAL ULCER
  3. BLOPRESS [Concomitant]
     Route: 048
  4. BLOPRESS [Concomitant]
     Route: 048
  5. CELECOX [Concomitant]
     Indication: OSTEOARTHRITIS
     Route: 048
     Dates: start: 20110913
  6. VIVIANT [Concomitant]
     Route: 048
  7. VIVIANT [Concomitant]
     Route: 048
  8. LOCHOL [Concomitant]
     Indication: DYSLIPIDAEMIA
     Route: 048
  9. LOCHOL [Concomitant]
     Route: 048
     Dates: end: 20120620
  10. PANALDINE [Concomitant]
     Route: 048
  11. PANALDINE [Concomitant]
     Route: 048
  12. METHYCOBAL [Concomitant]
     Indication: CARPAL TUNNEL SYNDROME
     Route: 048
     Dates: start: 20121229
  13. METHYCOBAL [Concomitant]
     Route: 048
     Dates: start: 20111229
  14. CRESTOR [Concomitant]
     Indication: DYSLIPIDAEMIA
     Route: 048
     Dates: start: 20120621
  15. ARTZ [Concomitant]
     Indication: OSTEOARTHRITIS
     Route: 014
  16. ARTZ [Concomitant]
     Route: 014
  17. HICORT [Concomitant]
     Indication: OSTEOARTHRITIS
     Route: 050
  18. HICORT [Concomitant]
     Route: 042
  19. FREEDOCAINE [Concomitant]
     Indication: OSTEOARTHRITIS
     Route: 050
  20. FREEDOCAINE [Concomitant]
     Route: 042

REACTIONS (1)
  - Basal cell carcinoma [Recovered/Resolved]
